FAERS Safety Report 7180307-8 (Version None)
Quarter: 2010Q4

REPORT INFORMATION
  Report Type: 
  Country: None (occurrence: None)
  Receive Date: 20101221
  Receipt Date: 20101213
  Transmission Date: 20110411
  Serious: Yes (Other)
  Sender: FDA-Public Use
  Company Number: US-MYLANLABS-2010S1018300

PATIENT
  Age: 21 Year
  Sex: Male
  Weight: 76.2 kg

DRUGS (2)
  1. AMNESTEEM [Suspect]
     Indication: ACNE
     Route: 048
     Dates: start: 20100603, end: 20100902
  2. AMNESTEEM [Suspect]
     Route: 048
     Dates: start: 20100903, end: 20100928

REACTIONS (4)
  - BLOOD CHOLESTEROL INCREASED [None]
  - LIP DRY [None]
  - SKIN IRRITATION [None]
  - URETHRITIS NONINFECTIVE [None]
